FAERS Safety Report 18664599 (Version 5)
Quarter: 2021Q3

REPORT INFORMATION
  Report Type: Spontaneous
  Country: GB (occurrence: GB)
  Receive Date: 20201225
  Receipt Date: 20210825
  Transmission Date: 20211014
  Serious: Yes (Other)
  Sender: FDA-Public Use
  Company Number: GB-BIOVITRUM-2020GB7891

PATIENT
  Age: 68 Year
  Sex: Male

DRUGS (83)
  1. ORFADIN [Suspect]
     Active Substance: NITISINONE
     Dates: start: 2017
  2. DICLOFENAC [Concomitant]
     Active Substance: DICLOFENAC
     Dates: start: 2012
  3. DIHYDROCODEINE [Concomitant]
     Active Substance: DIHYDROCODEINE
     Dates: start: 2015
  4. DIHYDROCODEINE [Concomitant]
     Active Substance: DIHYDROCODEINE
     Dates: start: 2019
  5. ANUSOL NOS [Concomitant]
     Active Substance: BALSAM PERU\BENZYL BENZOATE\BISMUTH HYDROXIDE\BISMUTH SUBGALLATE\HYDROCORTISONE ACETATE\ZINC OXIDE
     Dates: start: 2012
  6. TOSTRAN [Concomitant]
     Active Substance: TESTOSTERONE
     Dates: start: 2014
  7. TOSTRAN [Concomitant]
     Active Substance: TESTOSTERONE
     Dates: start: 2015
  8. TOSTRAN [Concomitant]
     Active Substance: TESTOSTERONE
     Dates: start: 2016
  9. NAPROXEN. [Concomitant]
     Active Substance: NAPROXEN
     Dates: start: 2015
  10. NAPROXEN. [Concomitant]
     Active Substance: NAPROXEN
     Dates: start: 2016
  11. QUININE SULFATE. [Concomitant]
     Active Substance: QUININE SULFATE
     Dates: start: 2015
  12. APIXABAN [Concomitant]
     Active Substance: APIXABAN
     Dates: start: 2017
  13. APIXABAN [Concomitant]
     Active Substance: APIXABAN
     Dates: start: 2019
  14. KIRIN [Concomitant]
     Dates: start: 2017
  15. KIRIN [Concomitant]
     Dates: start: 2018
  16. DENOSUMAB [Concomitant]
     Active Substance: DENOSUMAB
     Dates: start: 2019
  17. ORFADIN [Suspect]
     Active Substance: NITISINONE
     Dates: start: 2013
  18. ORFADIN [Suspect]
     Active Substance: NITISINONE
     Dates: start: 2014
  19. ORFADIN [Suspect]
     Active Substance: NITISINONE
     Dates: start: 2015
  20. ORFADIN [Suspect]
     Active Substance: NITISINONE
     Dates: start: 2018
  21. DIHYDROCODEINE [Concomitant]
     Active Substance: DIHYDROCODEINE
     Dates: start: 2013
  22. LANSOPRAZOLE. [Concomitant]
     Active Substance: LANSOPRAZOLE
     Dates: start: 2013
  23. RAMIPRIL. [Concomitant]
     Active Substance: RAMIPRIL
     Dates: start: 2017
  24. MACROGOL [Concomitant]
     Active Substance: POLYETHYLENE GLYCOLS
     Dates: start: 2016
  25. BISOPROLOL [Concomitant]
     Active Substance: BISOPROLOL
     Dates: start: 2017
  26. ORFADIN [Suspect]
     Active Substance: NITISINONE
     Dates: start: 2019
  27. TOSTRAN [Concomitant]
     Active Substance: TESTOSTERONE
     Dates: start: 2013
  28. MOVICOL [Concomitant]
     Active Substance: POLYETHYLENE GLYCOL 3350\POTASSIUM CHLORIDE\SODIUM BICARBONATE\SODIUM CHLORIDE
     Dates: start: 2013
  29. PRO ZERO [Concomitant]
     Dates: start: 2014
  30. RISEDRONATE [Concomitant]
     Active Substance: RISEDRONATE SODIUM
     Dates: start: 2013
  31. RISEDRONATE [Concomitant]
     Active Substance: RISEDRONATE SODIUM
     Dates: start: 2014
  32. RAMIPRIL. [Concomitant]
     Active Substance: RAMIPRIL
     Dosage: 5M
     Dates: start: 2016
  33. RAMIPRIL. [Concomitant]
     Active Substance: RAMIPRIL
     Dates: start: 2018
  34. QUININE SULFATE. [Concomitant]
     Active Substance: QUININE SULFATE
     Dates: start: 2016
  35. ADCAL D3 [Concomitant]
     Active Substance: CALCIUM CARBONATE\CHOLECALCIFEROL
     Dates: start: 2015
  36. ADCAL D3 [Concomitant]
     Active Substance: CALCIUM CARBONATE\CHOLECALCIFEROL
     Dates: start: 2017
  37. ADCAL D3 [Concomitant]
     Active Substance: CALCIUM CARBONATE\CHOLECALCIFEROL
     Dates: start: 2019
  38. BISOPROLOL [Concomitant]
     Active Substance: BISOPROLOL
     Dates: start: 2019
  39. SUDOCREAM [Concomitant]
     Dates: start: 2012
  40. LANSOPRAZOLE. [Concomitant]
     Active Substance: LANSOPRAZOLE
     Dates: start: 2017
  41. LANSOPRAZOLE. [Concomitant]
     Active Substance: LANSOPRAZOLE
     Dates: start: 2019
  42. RISEDRONATE [Concomitant]
     Active Substance: RISEDRONATE SODIUM
     Dates: start: 2015
  43. RISEDRONATE [Concomitant]
     Active Substance: RISEDRONATE SODIUM
     Dates: start: 2016
  44. QUININE SULFATE. [Concomitant]
     Active Substance: QUININE SULFATE
     Dates: start: 2017
  45. DENOSUMAB [Concomitant]
     Active Substance: DENOSUMAB
     Dates: start: 2017
  46. DENOSUMAB [Concomitant]
     Active Substance: DENOSUMAB
     Dates: start: 2018
  47. DIHYDROCODEINE [Concomitant]
     Active Substance: DIHYDROCODEINE
     Dates: start: 2014
  48. DIHYDROCODEINE [Concomitant]
     Active Substance: DIHYDROCODEINE
     Dates: start: 2017
  49. DIHYDROCODEINE [Concomitant]
     Active Substance: DIHYDROCODEINE
     Dates: start: 2018
  50. LANSOPRAZOLE. [Concomitant]
     Active Substance: LANSOPRAZOLE
     Dates: start: 2014
  51. LANSOPRAZOLE. [Concomitant]
     Active Substance: LANSOPRAZOLE
     Dates: start: 2018
  52. NAPROXEN. [Concomitant]
     Active Substance: NAPROXEN
     Dates: start: 2014
  53. NAPROXEN. [Concomitant]
     Active Substance: NAPROXEN
     Dates: start: 2017
  54. NAPROXEN. [Concomitant]
     Active Substance: NAPROXEN
     Dates: start: 2018
  55. RAMIPRIL. [Concomitant]
     Active Substance: RAMIPRIL
     Dates: start: 2014
  56. QUININE SULFATE. [Concomitant]
     Active Substance: QUININE SULFATE
     Dates: start: 2019
  57. MACROGOL [Concomitant]
     Active Substance: POLYETHYLENE GLYCOLS
     Dates: start: 2018
  58. DIHYDROCODEINE [Concomitant]
     Active Substance: DIHYDROCODEINE
     Dates: start: 2016
  59. TOSTRAN [Concomitant]
     Active Substance: TESTOSTERONE
     Dates: start: 2018
  60. TOSTRAN [Concomitant]
     Active Substance: TESTOSTERONE
     Dates: start: 2019
  61. NAPROXEN. [Concomitant]
     Active Substance: NAPROXEN
     Dates: start: 2013
  62. MOVICOL [Concomitant]
     Active Substance: POLYETHYLENE GLYCOL 3350\POTASSIUM CHLORIDE\SODIUM BICARBONATE\SODIUM CHLORIDE
     Dates: start: 2014
  63. RAMIPRIL. [Concomitant]
     Active Substance: RAMIPRIL
     Dates: start: 2019
  64. QUININE SULFATE. [Concomitant]
     Active Substance: QUININE SULFATE
     Dates: start: 2018
  65. ADCAL D3 [Concomitant]
     Active Substance: CALCIUM CARBONATE\CHOLECALCIFEROL
     Dates: start: 2016
  66. MACROGOL [Concomitant]
     Active Substance: POLYETHYLENE GLYCOLS
     Dates: start: 2015
  67. MACROGOL [Concomitant]
     Active Substance: POLYETHYLENE GLYCOLS
     Dates: start: 2017
  68. ORFADIN [Suspect]
     Active Substance: NITISINONE
     Indication: ALKAPTONURIA
     Dates: start: 2012
  69. OMEPRAZOLE. [Concomitant]
     Active Substance: OMEPRAZOLE
     Dates: start: 2012
  70. TOSTRAN [Concomitant]
     Active Substance: TESTOSTERONE
     Dates: start: 2012
  71. LANSOPRAZOLE. [Concomitant]
     Active Substance: LANSOPRAZOLE
     Dates: start: 2015
  72. PRO ZERO [Concomitant]
     Dates: start: 2015
  73. APIXABAN [Concomitant]
     Active Substance: APIXABAN
     Dates: start: 2016
  74. APIXABAN [Concomitant]
     Active Substance: APIXABAN
     Dates: start: 2018
  75. ORFADIN [Suspect]
     Active Substance: NITISINONE
     Dates: start: 2016
  76. DIHYDROCODEINE [Concomitant]
     Active Substance: DIHYDROCODEINE
     Dates: start: 2012
  77. DIHYDROCODEINE [Concomitant]
     Active Substance: DIHYDROCODEINE
     Dates: start: 2014
  78. TOSTRAN [Concomitant]
     Active Substance: TESTOSTERONE
     Dates: start: 2017
  79. LANSOPRAZOLE. [Concomitant]
     Active Substance: LANSOPRAZOLE
     Dates: start: 2016
  80. PRO ZERO [Concomitant]
     Dates: start: 2013
  81. RAMIPRIL. [Concomitant]
     Active Substance: RAMIPRIL
     Dates: start: 2015
  82. ADCAL D3 [Concomitant]
     Active Substance: CALCIUM CARBONATE\CHOLECALCIFEROL
     Dates: start: 2018
  83. BISOPROLOL [Concomitant]
     Active Substance: BISOPROLOL
     Dates: start: 2018

REACTIONS (5)
  - Amino acid level increased [Not Recovered/Not Resolved]
  - Lenticular opacities [Not Recovered/Not Resolved]
  - Meibomian gland dysfunction [Not Recovered/Not Resolved]
  - Visual impairment [Not Recovered/Not Resolved]
  - Cataract cortical [Unknown]

NARRATIVE: CASE EVENT DATE: 2013
